FAERS Safety Report 26158473 (Version 1)
Quarter: 2025Q4

REPORT INFORMATION
  Report Type: Report from Study
  Country: US (occurrence: US)
  Receive Date: 20251215
  Receipt Date: 20251215
  Transmission Date: 20260117
  Serious: Yes (Other)
  Sender: TAIHO ONCOLOGY INC
  Company Number: US-TAIHOP-2025-006803

PATIENT
  Age: 69 Year
  Sex: Female
  Weight: 70.31 kg

DRUGS (19)
  1. LONSURF [Suspect]
     Active Substance: TIPIRACIL HYDROCHLORIDE\TRIFLURIDINE
     Indication: Colon cancer
     Dosage: CYCLE UNKNOWN?START DATE:01-OCT-2025
     Route: 048
  2. VITAMINS [Concomitant]
     Active Substance: VITAMINS
     Indication: Product used for unknown indication
  3. AMLODIPINE BESYLATE [Concomitant]
     Active Substance: AMLODIPINE BESYLATE
     Indication: Product used for unknown indication
  4. AVASTIN [Concomitant]
     Active Substance: BEVACIZUMAB
     Indication: Product used for unknown indication
     Dosage: 25/MG/ML VIAL
  5. INSULIN CARTRIDGE [Concomitant]
     Indication: Product used for unknown indication
     Dosage: EACH
  6. ACETAZOLAMIDE [Concomitant]
     Active Substance: ACETAZOLAMIDE
     Indication: Product used for unknown indication
  7. AMLODIPINE [Concomitant]
     Active Substance: AMLODIPINE BESYLATE
     Indication: Product used for unknown indication
  8. AMMONIUM LAC [Concomitant]
     Indication: Product used for unknown indication
     Dosage: LOT
  9. COMBIGAN [Concomitant]
     Active Substance: BRIMONIDINE TARTRATE\TIMOLOL MALEATE
     Indication: Product used for unknown indication
     Dosage: SOL 0.2/0.5%
  10. LACTULOSE [Concomitant]
     Active Substance: LACTULOSE
     Indication: Product used for unknown indication
     Dosage: SOL 20/30ML
  11. LIDO/PRILOCN [Concomitant]
     Indication: Product used for unknown indication
     Dosage: CRE 2.5-2.5%
  12. MUPIROCIN [Concomitant]
     Active Substance: MUPIROCIN
     Indication: Product used for unknown indication
  13. NOVOLOG [Concomitant]
     Active Substance: INSULIN ASPART
     Indication: Product used for unknown indication
     Dosage: 100/ML
  14. ONDANSETON ODT [Concomitant]
     Indication: Product used for unknown indication
  15. PROCHLORPER [Concomitant]
     Indication: Product used for unknown indication
  16. PYRIDOXINE [Concomitant]
     Active Substance: PYRIDOXINE
     Indication: Product used for unknown indication
  17. SENNA-S [Concomitant]
     Active Substance: DOCUSATE SODIUM\SENNOSIDES
     Indication: Product used for unknown indication
     Dosage: 8.6-50MG
  18. VIT B12/FA [Concomitant]
     Indication: Product used for unknown indication
  19. INSULIN ASPA [Concomitant]
     Indication: Product used for unknown indication
     Dosage: 100/ML

REACTIONS (19)
  - Hyperbilirubinaemia [Unknown]
  - Blood glucose increased [Not Recovered/Not Resolved]
  - Vomiting [Recovered/Resolved]
  - Dysphonia [Not Recovered/Not Resolved]
  - Neuropathy peripheral [Unknown]
  - Nausea [Unknown]
  - Disease progression [Unknown]
  - Fatigue [Unknown]
  - Back pain [Unknown]
  - Constipation [Unknown]
  - Dehydration [Unknown]
  - Decreased appetite [Unknown]
  - Abdominal pain upper [Unknown]
  - Dry skin [Unknown]
  - Anxiety [Unknown]
  - Nasal dryness [Unknown]
  - Hypertransaminasaemia [Unknown]
  - Iron deficiency anaemia [Unknown]
  - General physical condition abnormal [Unknown]

NARRATIVE: CASE EVENT DATE: 20250625
